FAERS Safety Report 13680022 (Version 4)
Quarter: 2017Q3

REPORT INFORMATION
  Report Type: Spontaneous
  Country: US (occurrence: US)
  Receive Date: 20170622
  Receipt Date: 20170721
  Transmission Date: 20171127
  Serious: Yes (Hospitalization, Other)
  Sender: FDA-Public Use
  Company Number: US-ALEXION PHARMACEUTICALS INC-A201706843

PATIENT
  Sex: Male

DRUGS (1)
  1. SOLIRIS [Suspect]
     Active Substance: ECULIZUMAB
     Indication: HAEMOLYTIC URAEMIC SYNDROME
     Dosage: 1200 MG, Q2W
     Route: 042

REACTIONS (8)
  - Weight decreased [Unknown]
  - Pain [Unknown]
  - Hypertension [Recovered/Resolved]
  - Cardiac failure congestive [Recovered/Resolved]
  - Blood creatinine abnormal [Unknown]
  - Oedema [Not Recovered/Not Resolved]
  - Dyspnoea [Unknown]
  - Weight increased [Unknown]
